FAERS Safety Report 26153971 (Version 1)
Quarter: 2025Q4

REPORT INFORMATION
  Report Type: Spontaneous
  Country: CN (occurrence: CN)
  Receive Date: 20251215
  Receipt Date: 20251215
  Transmission Date: 20260117
  Serious: Yes (Hospitalization)
  Sender: BEIGENE
  Company Number: CN-BEONEMEDICINES-BGN-2025-022074

PATIENT
  Age: 39 Year
  Sex: Male

DRUGS (13)
  1. TISLELIZUMAB [Suspect]
     Active Substance: TISLELIZUMAB
     Indication: Nasopharyngeal cancer
     Dosage: 200 MILLIGRAM, QD
     Dates: start: 20251112
  2. TISLELIZUMAB [Suspect]
     Active Substance: TISLELIZUMAB
     Dosage: 200 MILLIGRAM, QD
     Route: 041
     Dates: start: 20251112
  3. TISLELIZUMAB [Suspect]
     Active Substance: TISLELIZUMAB
     Dosage: 200 MILLIGRAM, QD
     Route: 041
     Dates: start: 20251112
  4. TISLELIZUMAB [Suspect]
     Active Substance: TISLELIZUMAB
     Dosage: 200 MILLIGRAM, QD
     Dates: start: 20251112
  5. DENOSUMAB [Suspect]
     Active Substance: DENOSUMAB
     Indication: Nasopharyngeal cancer
     Dosage: 120 MILLIGRAM
     Route: 041
     Dates: start: 20251112, end: 20251112
  6. DENOSUMAB [Suspect]
     Active Substance: DENOSUMAB
     Dosage: 120 MILLIGRAM
     Dates: start: 20251112, end: 20251112
  7. FLUOROURACIL [Suspect]
     Active Substance: FLUOROURACIL
     Indication: Nasopharyngeal cancer
     Dosage: 18 DOSAGE FORM, QD
     Dates: start: 20251112, end: 20251112
  8. PACLITAXEL [Suspect]
     Active Substance: PACLITAXEL
     Indication: Nasopharyngeal cancer
     Dosage: 320 MILLIGRAM
     Route: 041
     Dates: start: 20251112, end: 20251112
  9. PACLITAXEL [Suspect]
     Active Substance: PACLITAXEL
     Dosage: 320 MILLIGRAM
     Dates: start: 20251112, end: 20251112
  10. CISPLATIN [Suspect]
     Active Substance: CISPLATIN
     Indication: Nasopharyngeal cancer
     Dosage: 50 MILLIGRAM, QD
     Dates: start: 20251112, end: 20251112
  11. CISPLATIN [Suspect]
     Active Substance: CISPLATIN
     Dosage: 50 MILLIGRAM, QD
     Route: 041
     Dates: start: 20251112, end: 20251112
  12. CISPLATIN [Suspect]
     Active Substance: CISPLATIN
     Dosage: 40 MILLIGRAM, QD
     Dates: start: 20251113, end: 20251113
  13. CISPLATIN [Suspect]
     Active Substance: CISPLATIN
     Dosage: 40 MILLIGRAM, QD
     Route: 041
     Dates: start: 20251113, end: 20251113

REACTIONS (3)
  - Nausea [Recovering/Resolving]
  - Decreased appetite [Recovering/Resolving]
  - Myelosuppression [Recovering/Resolving]

NARRATIVE: CASE EVENT DATE: 20251118
